FAERS Safety Report 23448669 (Version 1)
Quarter: 2024Q1

REPORT INFORMATION
  Report Type: Spontaneous
  Country: CA (occurrence: CA)
  Receive Date: 20240127
  Receipt Date: 20240127
  Transmission Date: 20240410
  Serious: Yes (Hospitalization)
  Sender: FDA-Public Use
  Company Number: None

PATIENT
  Age: 41 Year
  Sex: Female
  Weight: 59 kg

DRUGS (6)
  1. TOPIRAMATE [Suspect]
     Active Substance: TOPIRAMATE
     Indication: Affective disorder
     Dosage: 3 EVERY 1 DAY
     Route: 048
  2. FROVATRIPTAN [Concomitant]
     Active Substance: FROVATRIPTAN
  3. ARIPIPRAZOLE [Suspect]
     Active Substance: ARIPIPRAZOLE
     Indication: Depression
  4. ESCITALOPRAM [Suspect]
     Active Substance: ESCITALOPRAM OXALATE
     Indication: Depression
  5. VITAMIN B12 [Concomitant]
     Active Substance: CYANOCOBALAMIN
  6. VITAMIN D3 [Concomitant]
     Active Substance: CHOLECALCIFEROL
     Dosage: 1000 IU TABLETS

REACTIONS (6)
  - Anxiety [Unknown]
  - Fatigue [Unknown]
  - Feeling jittery [Unknown]
  - Hot flush [Unknown]
  - Nausea [Unknown]
  - Vomiting [Unknown]
